FAERS Safety Report 6236665-1 (Version None)
Quarter: 2009Q2

REPORT INFORMATION
  Report Type: 
  Country: None (occurrence: None)
  Receive Date: 20090619
  Receipt Date: 20090108
  Transmission Date: 20091009
  Serious: No
  Sender: FDA-Public Use
  Company Number: US-ASTRAZENECA-2009UW00719

PATIENT
  Age: 20154 Day
  Sex: Male
  Weight: 99.8 kg

DRUGS (1)
  1. ATACAND HCT [Suspect]
     Indication: HYPERTENSION
     Dosage: 32/12.5 MG
     Route: 048
     Dates: start: 20070101

REACTIONS (1)
  - LIMB DISCOMFORT [None]
